FAERS Safety Report 6386378-0 (Version None)
Quarter: 2009Q3

REPORT INFORMATION
  Report Type: 
  Country: None (occurrence: None)
  Receive Date: 20090930
  Receipt Date: 20090930
  Transmission Date: 20100115
  Serious: Yes (Other)
  Sender: FDA-Public Use
  Company Number: None

PATIENT
  Sex: Female
  Weight: 61.2356 kg

DRUGS (1)
  1. ACTONEL [Suspect]
     Indication: OSTEOPOROSIS
     Dosage: ONE TABLET WEEKLY PO (THERAPY DATES BEST ESTIMATE)
     Route: 048
     Dates: start: 20050719, end: 20090920

REACTIONS (4)
  - ARTHRALGIA [None]
  - BACK PAIN [None]
  - MIDDLE INSOMNIA [None]
  - MUSCULOSKELETAL PAIN [None]
